FAERS Safety Report 21801472 (Version 1)
Quarter: 2022Q4

REPORT INFORMATION
  Report Type: Spontaneous
  Country: FR (occurrence: FR)
  Receive Date: 20221230
  Receipt Date: 20221230
  Transmission Date: 20230113
  Serious: Yes (Death, Hospitalization)
  Sender: FDA-Public Use
  Company Number: None

PATIENT
  Age: 51 Year
  Sex: Female
  Weight: 83 kg

DRUGS (4)
  1. EMEND [Suspect]
     Active Substance: APREPITANT
     Indication: Vomiting
     Dosage: 80 MG QD
     Route: 048
     Dates: start: 20220801, end: 20221202
  2. KEYTRUDA [Suspect]
     Active Substance: PEMBROLIZUMAB
     Indication: Breast cancer
     Dosage: 200MG J1-J21 CYCLICAL
     Route: 042
     Dates: start: 20220801, end: 20221202
  3. CYCLOPHOSPHAMIDE [Suspect]
     Active Substance: CYCLOPHOSPHAMIDE
     Indication: Breast cancer
     Dosage: 600 MILLIGRAM/SQ. METER J1-J21 CYCLICAL
     Route: 042
     Dates: start: 20221013, end: 20221202
  4. EPIRUBICIN [Suspect]
     Active Substance: EPIRUBICIN
     Indication: Breast cancer
     Dosage: 90 MILLIGRAM/SQ. METER J1-J21, CYCLICAL
     Route: 042
     Dates: start: 20221013, end: 20221202

REACTIONS (1)
  - Septic shock [Fatal]

NARRATIVE: CASE EVENT DATE: 20221210
